FAERS Safety Report 10672800 (Version 1)
Quarter: 2014Q4

REPORT INFORMATION
  Report Type: Report from Study
  Country: FR (occurrence: FR)
  Receive Date: 20141223
  Receipt Date: 20141223
  Transmission Date: 20150529
  Serious: Yes (Other)
  Sender: FDA-Public Use
  Company Number: FR-B.I. PHARMACEUTICALS,INC./RIDGEFIELD-2014-BI-60813II

PATIENT
  Age: 53 Year
  Sex: Female

DRUGS (13)
  1. BIBF 1120 [Suspect]
     Active Substance: NINTEDANIB
     Indication: FALLOPIAN TUBE CANCER
  2. ATARAX [Concomitant]
     Active Substance: HYDROXYZINE\HYDROXYZINE HYDROCHLORIDE
     Indication: PRODUCT USED FOR UNKNOWN INDICATION
     Route: 048
  3. PACLITAXEL. [Concomitant]
     Active Substance: PACLITAXEL
     Indication: OVARIAN CANCER
     Dosage: DOSE PER APPLICATION:175 MG/M2
     Route: 065
     Dates: start: 20141031
  4. URBANYL [Concomitant]
     Active Substance: CLOBAZAM
     Indication: PRODUCT USED FOR UNKNOWN INDICATION
     Route: 048
  5. PACLITAXEL. [Concomitant]
     Active Substance: PACLITAXEL
     Indication: MALIGNANT PERITONEAL NEOPLASM
  6. SEROPLEX [Concomitant]
     Active Substance: ESCITALOPRAM OXALATE
     Indication: PRODUCT USED FOR UNKNOWN INDICATION
     Route: 048
  7. PACLITAXEL. [Concomitant]
     Active Substance: PACLITAXEL
     Indication: FALLOPIAN TUBE CANCER
  8. BIBF 1120 [Suspect]
     Active Substance: NINTEDANIB
     Indication: OVARIAN CANCER
     Route: 065
     Dates: start: 20141101, end: 20141212
  9. CARBOPLATINE [Concomitant]
     Active Substance: CARBOPLATIN
     Indication: OVARIAN CANCER
     Route: 065
     Dates: start: 20141031
  10. SERESTA [Concomitant]
     Active Substance: OXAZEPAM
     Indication: PRODUCT USED FOR UNKNOWN INDICATION
     Route: 048
  11. CARBOPLATINE [Concomitant]
     Active Substance: CARBOPLATIN
     Indication: FALLOPIAN TUBE CANCER
  12. CARBOPLATINE [Concomitant]
     Active Substance: CARBOPLATIN
     Indication: MALIGNANT PERITONEAL NEOPLASM
  13. BIBF 1120 [Suspect]
     Active Substance: NINTEDANIB
     Indication: MALIGNANT PERITONEAL NEOPLASM

REACTIONS (2)
  - Jugular vein thrombosis [Not Recovered/Not Resolved]
  - Papilloedema [Not Recovered/Not Resolved]

NARRATIVE: CASE EVENT DATE: 20141121
